FAERS Safety Report 9701904 (Version 2)
Quarter: 2013Q4

REPORT INFORMATION
  Report Type: Spontaneous
  Country: JP (occurrence: JP)
  Receive Date: 20131121
  Receipt Date: 20131204
  Transmission Date: 20140711
  Serious: Yes (Hospitalization, Other)
  Sender: FDA-Public Use
  Company Number: JP-ABBVIE-13P-087-1171848-00

PATIENT
  Age: 32 Year
  Sex: Female

DRUGS (1)
  1. SEVOFRANE [Suspect]
     Indication: CAESAREAN SECTION
     Route: 055

REACTIONS (4)
  - Multi-organ failure [Recovered/Resolved]
  - Delayed recovery from anaesthesia [Unknown]
  - Disseminated intravascular coagulation [Recovered/Resolved]
  - Anaphylactoid syndrome of pregnancy [Recovered/Resolved]
